FAERS Safety Report 7388881-3 (Version None)
Quarter: 2011Q2

REPORT INFORMATION
  Report Type: 
  Country: None (occurrence: None)
  Receive Date: 20110401
  Receipt Date: 20110323
  Transmission Date: 20111010
  Serious: Yes (Other)
  Sender: FDA-Public Use
  Company Number: BE-BAXTER-2011BH007937

PATIENT
  Age: 39 Year
  Sex: Female

DRUGS (5)
  1. CYCLOPHOSPHAMIDE [Suspect]
     Indication: BREAST CANCER
     Route: 065
  2. LOCAL IRRADIATION [Suspect]
     Indication: BREAST CANCER
     Route: 065
  3. EPIRUBICIN HYDROCHLORIDE [Suspect]
     Indication: BREAST CANCER
     Route: 065
  4. METHOTREXATE GENERIC [Suspect]
     Indication: BREAST CANCER
     Route: 065
  5. FLUOROURACIL [Suspect]
     Indication: BREAST CANCER
     Route: 065

REACTIONS (2)
  - ABORTION INDUCED [None]
  - DRUG EXPOSURE DURING PREGNANCY [None]
